FAERS Safety Report 7656073-6 (Version None)
Quarter: 2011Q3

REPORT INFORMATION
  Report Type: 
  Country: None (occurrence: None)
  Receive Date: 20110804
  Receipt Date: 20110718
  Transmission Date: 20111222
  Serious: Yes (Other)
  Sender: FDA-Public Use
  Company Number: US-ROCHE-790922

PATIENT
  Sex: Female

DRUGS (3)
  1. ACTEMRA [Suspect]
     Dosage: SECOND INFUSION
     Route: 042
  2. ACTEMRA [Suspect]
     Indication: RHEUMATOID ARTHRITIS
     Dosage: FIRST INFUSION
     Route: 042
     Dates: start: 20110622
  3. ACTEMRA [Suspect]
     Dosage: THIRD INFUSION
     Route: 042

REACTIONS (4)
  - MALAISE [None]
  - FEELING JITTERY [None]
  - TREMOR [None]
  - DYSPNOEA [None]
